FAERS Safety Report 9280365 (Version 1)
Quarter: 2013Q2

REPORT INFORMATION
  Report Type: Spontaneous
  Country: US (occurrence: None)
  Receive Date: 20130507
  Receipt Date: 20130507
  Transmission Date: 20140414
  Serious: Yes (Hospitalization)
  Sender: FDA-Public Use
  Company Number: None

PATIENT
  Age: 70 Year
  Sex: Male
  Weight: 87.2 kg

DRUGS (6)
  1. JANUVIA 100 MG MERCK [Suspect]
     Route: 048
  2. ASPIRIN [Concomitant]
  3. GLYBURIDE-METFORMIN [Concomitant]
  4. LOSARTAN [Concomitant]
  5. METOPROLOL TARTRATE [Concomitant]
  6. LOVASTATIN [Concomitant]

REACTIONS (1)
  - Pancreatitis [None]
